FAERS Safety Report 11486278 (Version 3)
Quarter: 2016Q1

REPORT INFORMATION
  Report Type: Spontaneous
  Country: GB (occurrence: GB)
  Receive Date: 20150910
  Receipt Date: 20160216
  Transmission Date: 20160525
  Serious: Yes (Hospitalization)
  Sender: FDA-Public Use
  Company Number: GB-AUROBINDO-AUR-APL-2015-07886

PATIENT
  Age: 44 Year
  Sex: Female

DRUGS (6)
  1. FLUCONAZOLE. [Suspect]
     Active Substance: FLUCONAZOLE
     Indication: RASH PRURITIC
     Route: 048
  2. FLUCLOXACILLIN [Concomitant]
     Active Substance: FLUCLOXACILLIN
     Indication: RASH PRURITIC
     Route: 048
  3. FLUCONAZOLE. [Suspect]
     Active Substance: FLUCONAZOLE
     Indication: RASH PRURITIC
  4. CANESTEN [Suspect]
     Active Substance: CLOTRIMAZOLE
     Indication: RASH PRURITIC
     Dosage: 1 %, UNK
     Route: 061
  5. CANESTEN [Suspect]
     Active Substance: CLOTRIMAZOLE
     Indication: RASH PRURITIC
  6. FLUCLOXACILLIN [Concomitant]
     Active Substance: FLUCLOXACILLIN
     Indication: RASH PRURITIC
     Route: 048

REACTIONS (5)
  - Malaise [Unknown]
  - Rash [Unknown]
  - Rash generalised [Unknown]
  - Dermatitis allergic [Unknown]
  - Dermatitis contact [Unknown]
